FAERS Safety Report 5950963-8 (Version None)
Quarter: 2008Q4

REPORT INFORMATION
  Report Type: 
  Country: None (occurrence: None)
  Receive Date: 20081112
  Receipt Date: 20081031
  Transmission Date: 20090506
  Serious: Yes (Hospitalization)
  Sender: FDA-Public Use
  Company Number: JP-PFIZER INC-2008093717

PATIENT
  Sex: Male

DRUGS (11)
  1. REVATIO [Suspect]
     Indication: PULMONARY HYPERTENSION
     Route: 048
     Dates: start: 20080819
  2. SPIRIVA [Suspect]
     Indication: CHRONIC OBSTRUCTIVE PULMONARY DISEASE
     Route: 055
     Dates: start: 20080813
  3. SEREVENT [Concomitant]
     Indication: CHRONIC OBSTRUCTIVE PULMONARY DISEASE
     Route: 055
     Dates: start: 20080813
  4. TAMBOCOR [Concomitant]
     Indication: ARRHYTHMIA
     Route: 048
  5. FAMOTIDINE [Concomitant]
     Route: 048
     Dates: start: 20080723
  6. LASIX [Concomitant]
     Route: 048
     Dates: start: 20080803
  7. ALDACTONE [Concomitant]
     Route: 048
     Dates: start: 20080807
  8. CRESTOR [Concomitant]
     Indication: HYPERLIPIDAEMIA
     Route: 048
     Dates: end: 20080921
  9. MEVALOTIN [Concomitant]
     Indication: HYPERLIPIDAEMIA
     Route: 048
     Dates: start: 20080723
  10. GATIFLOXACIN [Concomitant]
     Indication: INFECTION
     Route: 048
     Dates: start: 20080925, end: 20080930
  11. WARFARIN POTASSIUM [Concomitant]
     Route: 048
     Dates: start: 20080908

REACTIONS (1)
  - URINARY RETENTION [None]
